FAERS Safety Report 10197033 (Version 1)
Quarter: 2014Q2

REPORT INFORMATION
  Report Type: Spontaneous
  Country: US (occurrence: None)
  Receive Date: 20140523
  Receipt Date: 20140523
  Transmission Date: 20141212
  Serious: Yes (Hospitalization)
  Sender: FDA-Public Use
  Company Number: None

PATIENT
  Age: 37 Year
  Sex: Male

DRUGS (1)
  1. INSULIN ASPART [Suspect]
     Indication: HYPERGLYCAEMIA
     Route: 058
     Dates: start: 20140312

REACTIONS (1)
  - Blood glucose decreased [None]
